FAERS Safety Report 21726947 (Version 1)
Quarter: 2022Q4

REPORT INFORMATION
  Report Type: Spontaneous
  Country: US (occurrence: None)
  Receive Date: 20221213
  Receipt Date: 20221213
  Transmission Date: 20230113
  Serious: No
  Sender: FDA-Public Use
  Company Number: None

PATIENT
  Sex: Female

DRUGS (10)
  1. TACROLIMUS [Suspect]
     Active Substance: TACROLIMUS
     Indication: Renal transplant
     Dosage: FREQUENCY : AS DIRECTED;?
     Route: 048
     Dates: start: 20180621
  2. ALLEGRA ALRG [Concomitant]
  3. ASPIRIN [Concomitant]
     Active Substance: ASPIRIN
  4. CELLCEPT [Concomitant]
     Active Substance: MYCOPHENOLATE MOFETIL
  5. LEVETIRACETA TAB [Concomitant]
  6. LISINOPRIL [Concomitant]
     Active Substance: LISINOPRIL
  7. MAGNESIUM TAB [Concomitant]
  8. MYCOPHANOLAT [Concomitant]
  9. PRAVASTATIN [Concomitant]
  10. PREDNISONE [Concomitant]
     Active Substance: PREDNISONE

REACTIONS (2)
  - Emergency care [None]
  - Therapy interrupted [None]
